FAERS Safety Report 9461927 (Version 1)
Quarter: 2013Q3

REPORT INFORMATION
  Report Type: Spontaneous
  Country: GB (occurrence: GB)
  Receive Date: 20130816
  Receipt Date: 20130816
  Transmission Date: 20140515
  Serious: Yes (Hospitalization)
  Sender: FDA-Public Use
  Company Number: GB-BAYER-2013-098923

PATIENT
  Age: 49 Year
  Sex: Male

DRUGS (9)
  1. OMEPRAZOLE [Suspect]
     Dosage: 140 MG, UNK
  2. ACETYLSALICYLIC ACID({=100 MG) [Suspect]
     Dosage: 525 MG, UNK
  3. ACAMPROSATE [Suspect]
     Dosage: 13860 MG, UNK
  4. AMISULPRIDE [Suspect]
     Dosage: 3150 MG, UNK
  5. ATORVASTATIN [Suspect]
     Dosage: 210 MG, UNK
  6. CITALOPRAM [Suspect]
     Dosage: 280 MG, UNK
  7. METFORMIN [Suspect]
     Dosage: 10500 MG, UNK
  8. ZAPONEX [Suspect]
     Dosage: UNK
     Route: 048
     Dates: start: 20110802, end: 201307
  9. ZAPONEX [Suspect]
     Dosage: 4.9 MG, UNK
     Route: 048

REACTIONS (3)
  - Overdose [Recovered/Resolved with Sequelae]
  - Cardiovascular disorder [Unknown]
  - Hypoventilation [Recovering/Resolving]
